FAERS Safety Report 7530058-2 (Version None)
Quarter: 2011Q2

REPORT INFORMATION
  Report Type: 
  Country: None (occurrence: None)
  Receive Date: 20110606
  Receipt Date: 20110606
  Transmission Date: 20111010
  Serious: No
  Sender: FDA-Public Use
  Company Number: None

PATIENT
  Sex: Female

DRUGS (1)
  1. SUTENT [Suspect]
     Dosage: 50MG ONE QD PO
     Route: 048
     Dates: start: 20110501

REACTIONS (3)
  - STOMATITIS [None]
  - DIARRHOEA [None]
  - SKIN DISORDER [None]
